FAERS Safety Report 10061712 (Version 1)
Quarter: 2014Q2

REPORT INFORMATION
  Report Type: Spontaneous
  Country: US (occurrence: US)
  Receive Date: 20140407
  Receipt Date: 20140407
  Transmission Date: 20141212
  Serious: No
  Sender: FDA-Public Use
  Company Number: US-TARO-2014P1001509

PATIENT
  Age: 66 Year
  Sex: Male
  Weight: 72.58 kg

DRUGS (5)
  1. FLUOROURACIL TOPICAL CREAM USP 5% [Suspect]
     Indication: ACTINIC KERATOSIS
     Route: 061
     Dates: start: 20140131, end: 20140220
  2. LISINOPRIL [Concomitant]
  3. ASPIRIN [Concomitant]
  4. PRILOSEC [Concomitant]
  5. OMEPRAZOLE [Concomitant]

REACTIONS (4)
  - Eyelid oedema [Recovering/Resolving]
  - Erythema of eyelid [Recovering/Resolving]
  - Skin disorder [Recovering/Resolving]
  - Skin exfoliation [Unknown]
